FAERS Safety Report 8837800 (Version 1)
Quarter: 2012Q4

REPORT INFORMATION
  Report Type: 
  Country: DE (occurrence: DE)
  Receive Date: 20121012
  Receipt Date: 20121012
  Transmission Date: 20130627
  Serious: Yes (Hospitalization)
  Sender: FDA-Public Use
  Company Number: DE-MERCK-1210DEU004956

PATIENT
  Age: 23 Year
  Sex: Male

DRUGS (2)
  1. PROPECIA [Suspect]
     Indication: ANDROGENETIC ALOPECIA
     Dosage: UNK, qd
     Route: 048
     Dates: start: 201009, end: 2012
  2. REGAINE [Concomitant]

REACTIONS (1)
  - Pancreatitis [Unknown]
